FAERS Safety Report 11976748 (Version 3)
Quarter: 2016Q1

REPORT INFORMATION
  Report Type: Spontaneous
  Country: BR (occurrence: BR)
  Receive Date: 20160129
  Receipt Date: 20160305
  Transmission Date: 20160526
  Serious: Yes (Death, Hospitalization, Other)
  Sender: FDA-Public Use
  Company Number: BR-AMGEN-BRASP2016009949

PATIENT
  Age: 50 Year
  Sex: Female

DRUGS (1)
  1. ENBREL [Suspect]
     Active Substance: ETANERCEPT
     Indication: RHEUMATOID ARTHRITIS
     Dosage: ONE AMPOULE, 1X/WEEK
     Route: 065
     Dates: start: 20130607

REACTIONS (8)
  - Coma [Unknown]
  - Multiple organ dysfunction syndrome [Fatal]
  - Pain [Unknown]
  - Systemic infection [Unknown]
  - Gastric disorder [Unknown]
  - Renal failure [Unknown]
  - Renal disorder [Unknown]
  - Urinary tract infection [Unknown]

NARRATIVE: CASE EVENT DATE: 2014
